FAERS Safety Report 13633536 (Version 2)
Quarter: 2017Q2

REPORT INFORMATION
  Report Type: Spontaneous
  Country: US (occurrence: US)
  Receive Date: 20170609
  Receipt Date: 20170626
  Transmission Date: 20170830
  Serious: Yes (Hospitalization)
  Sender: FDA-Public Use
  Company Number: US-B.I. PHARMACEUTICALS,INC./RIDGEFIELD-2017-BI-031952

PATIENT
  Sex: Male

DRUGS (9)
  1. HYTRIN [Concomitant]
     Active Substance: TERAZOSIN HYDROCHLORIDE
     Indication: PRODUCT USED FOR UNKNOWN INDICATION
     Route: 048
  2. PRADAXA [Suspect]
     Active Substance: DABIGATRAN ETEXILATE MESYLATE
     Indication: ATRIAL FIBRILLATION
     Route: 065
     Dates: end: 20111221
  3. SIMVASTATIN. [Concomitant]
     Active Substance: SIMVASTATIN
     Indication: PRODUCT USED FOR UNKNOWN INDICATION
     Route: 048
  4. XANAX [Concomitant]
     Active Substance: ALPRAZOLAM
     Indication: PRODUCT USED FOR UNKNOWN INDICATION
     Route: 048
  5. TOPROL XL [Concomitant]
     Active Substance: METOPROLOL SUCCINATE
     Indication: PRODUCT USED FOR UNKNOWN INDICATION
     Route: 048
  6. FISH OIL CONCENTRATE [Concomitant]
     Active Substance: FISH OIL
     Indication: PRODUCT USED FOR UNKNOWN INDICATION
     Route: 048
  7. NEXIUM [Concomitant]
     Active Substance: ESOMEPRAZOLE MAGNESIUM
     Indication: PRODUCT USED FOR UNKNOWN INDICATION
     Route: 048
  8. PEPCID [Concomitant]
     Active Substance: FAMOTIDINE
     Indication: PRODUCT USED FOR UNKNOWN INDICATION
     Route: 048
  9. LISINOPRIL. [Concomitant]
     Active Substance: LISINOPRIL
     Indication: PRODUCT USED FOR UNKNOWN INDICATION
     Route: 048

REACTIONS (1)
  - Haemoptysis [Recovered/Resolved]
